FAERS Safety Report 7507258-0 (Version None)
Quarter: 2011Q2

REPORT INFORMATION
  Report Type: 
  Country: None (occurrence: None)
  Receive Date: 20110526
  Receipt Date: 20110523
  Transmission Date: 20111010
  Serious: No
  Sender: FDA-Public Use
  Company Number: US-TEVA-283030USA

PATIENT
  Sex: Female
  Weight: 61.29 kg

DRUGS (3)
  1. AZILECT [Suspect]
     Indication: PARKINSON'S DISEASE
     Dosage: 1 MILLIGRAM;
     Route: 048
     Dates: start: 20110509
  2. FISH OIL [Concomitant]
  3. SINEMET [Concomitant]

REACTIONS (2)
  - TREMOR [None]
  - DRUG INEFFECTIVE [None]
